FAERS Safety Report 7949415-5 (Version None)
Quarter: 2011Q4

REPORT INFORMATION
  Report Type: 
  Country: None (occurrence: None)
  Receive Date: 20111123
  Receipt Date: 20111110
  Transmission Date: 20120403
  Serious: Yes (Hospitalization)
  Sender: FDA-Public Use
  Company Number: 2011HGS-002777

PATIENT
  Age: 51 Year
  Sex: Female

DRUGS (2)
  1. UNSPECIFIED INHALER (UNSPECIFIED INHALER) [Concomitant]
  2. BENLYSTA [Suspect]
     Indication: SYSTEMIC LUPUS ERYTHEMATOSUS
     Dosage: 10 MG/KG, 1 IN 14 D, INTRAVENOUS
     Route: 042

REACTIONS (2)
  - BLOOD PRESSURE INCREASED [None]
  - HYPERSENSITIVITY [None]
